FAERS Safety Report 6226528-X (Version None)
Quarter: 2009Q2

REPORT INFORMATION
  Report Type: 
  Country: None (occurrence: None)
  Receive Date: 20090612
  Receipt Date: 20090518
  Transmission Date: 20091009
  Serious: No
  Sender: FDA-Public Use
  Company Number: US-ABBOTT-09P-163-0574282-00

PATIENT
  Sex: Male
  Weight: 102.15 kg

DRUGS (1)
  1. HUMIRA [Suspect]
     Indication: PSORIASIS
     Dates: start: 20090401

REACTIONS (7)
  - ASTHENIA [None]
  - CHILLS [None]
  - INFLUENZA [None]
  - MALAISE [None]
  - MEMORY IMPAIRMENT [None]
  - PYREXIA [None]
  - VOMITING [None]
